FAERS Safety Report 11930549 (Version 1)
Quarter: 2016Q1

REPORT INFORMATION
  Report Type: Spontaneous
  Country: PL (occurrence: PL)
  Receive Date: 20160120
  Receipt Date: 20160120
  Transmission Date: 20160526
  Serious: Yes (Hospitalization)
  Sender: FDA-Public Use
  Company Number: PL-ELI_LILLY_AND_COMPANY-PL201601004812

PATIENT
  Age: 75 Year
  Sex: Female

DRUGS (10)
  1. AMLODIPINE [Concomitant]
     Active Substance: AMLODIPINE BESYLATE
     Dosage: UNK, QD
     Route: 065
  2. XARELTO [Concomitant]
     Active Substance: RIVAROXABAN
     Dosage: UNK, QD
     Route: 065
  3. IPP                                /00661201/ [Concomitant]
     Dosage: UNK, QD
     Route: 065
  4. HUMULIN R [Suspect]
     Active Substance: INSULIN HUMAN
     Indication: PRODUCT USED FOR UNKNOWN INDICATION
     Dosage: 6 U, EACH MORNING
     Route: 065
     Dates: start: 2013
  5. CONCOR COR [Concomitant]
     Active Substance: BISOPROLOL FUMARATE
     Dosage: UNK, QD
     Route: 065
  6. THIOGAMMA [Concomitant]
     Active Substance: THIOCTIC ACID
     Dosage: UNK, QD
     Route: 065
  7. HUMULIN 70/30 [Suspect]
     Active Substance: INSULIN HUMAN
     Indication: PRODUCT USED FOR UNKNOWN INDICATION
     Dosage: 20 U, EACH MORNING
     Route: 065
     Dates: start: 2013
  8. HUMULIN 70/30 [Suspect]
     Active Substance: INSULIN HUMAN
     Dosage: 16 U, EACH EVENING
     Route: 065
     Dates: start: 2013
  9. VASTAN [Concomitant]
     Dosage: UNK, QD
     Route: 065
  10. TRITACE [Concomitant]
     Active Substance: RAMIPRIL
     Dosage: UNK, QD
     Route: 065

REACTIONS (4)
  - Hypoglycaemia [Recovering/Resolving]
  - Diabetic neuropathy [Unknown]
  - Metabolic disorder [Unknown]
  - Hyperglycaemia [Recovering/Resolving]
